FAERS Safety Report 17677016 (Version 2)
Quarter: 2020Q3

REPORT INFORMATION
  Report Type: Spontaneous
  Country: PL (occurrence: PL)
  Receive Date: 20200416
  Receipt Date: 20200730
  Transmission Date: 20201102
  Serious: Yes (Other)
  Sender: FDA-Public Use
  Company Number: PL-MYLANLABS-2020M1037753

PATIENT
  Age: 71 Year
  Sex: Male

DRUGS (8)
  1. TRAMADOL/PARACETAMOL [Concomitant]
     Active Substance: ACETAMINOPHEN\TRAMADOL
  2. PROMAZINE [Interacting]
     Active Substance: PROMAZINE
     Indication: INSOMNIA
     Dosage: UNK
     Route: 065
  3. CHONDROITIN SULPHATE [Concomitant]
     Active Substance: SODIUM CHONDROITIN SULFATE
     Indication: PRODUCT USED FOR UNKNOWN INDICATION
  4. ZOFENOPRIL [Concomitant]
     Active Substance: ZOFENOPRIL
  5. LERCANIDIPINE [Concomitant]
     Active Substance: LERCANIDIPINE
  6. DOXAZOSIN [Suspect]
     Active Substance: DOXAZOSIN MESYLATE
     Indication: HYPERTENSION
     Dosage: UNK
  7. SPIRONOLACTONE. [Concomitant]
     Active Substance: SPIRONOLACTONE
     Indication: PRODUCT USED FOR UNKNOWN INDICATION
  8. DOXAZOSIN [Interacting]
     Active Substance: DOXAZOSIN MESYLATE
     Dosage: UNK
     Route: 065

REACTIONS (4)
  - Femoral neck fracture [Unknown]
  - Fall [Unknown]
  - Hypotension [Unknown]
  - Drug interaction [Unknown]
